FAERS Safety Report 6911458-8 (Version None)
Quarter: 2010Q3

REPORT INFORMATION
  Report Type: 
  Country: None (occurrence: None)
  Receive Date: 20100806
  Receipt Date: 20100727
  Transmission Date: 20110219
  Serious: Yes (Other)
  Sender: FDA-Public Use
  Company Number: GB-JNJFOC-20100708735

PATIENT
  Age: 10 Year
  Sex: Female

DRUGS (3)
  1. REMICADE [Suspect]
     Indication: JUVENILE ARTHRITIS
     Dosage: FOR 4 YEARS
     Route: 042
  2. HYDROCORTISONE [Concomitant]
     Indication: PREMEDICATION
  3. PUR-RUTIN [Concomitant]
     Indication: PREMEDICATION

REACTIONS (4)
  - CHEST DISCOMFORT [None]
  - CHEST PAIN [None]
  - DYSPNOEA [None]
  - INFUSION RELATED REACTION [None]
